FAERS Safety Report 10455145 (Version 1)
Quarter: 2014Q3

REPORT INFORMATION
  Report Type: Spontaneous
  Country: FR (occurrence: FR)
  Receive Date: 20140916
  Receipt Date: 20140916
  Transmission Date: 20150326
  Serious: Yes (Hospitalization)
  Sender: FDA-Public Use
  Company Number: FR-ROCHE-1458330

PATIENT
  Sex: Male

DRUGS (12)
  1. CYCLOPHOSPHAMIDE. [Suspect]
     Active Substance: CYCLOPHOSPHAMIDE
     Indication: PRODUCT USED FOR UNKNOWN INDICATION
     Dosage: 1230 MG/COURSE, 2 COURSES
     Route: 064
     Dates: start: 20131021, end: 20131112
  2. LOVENOX [Concomitant]
     Active Substance: ENOXAPARIN SODIUM
     Route: 065
  3. PARACETAMOL [Concomitant]
     Active Substance: ACETAMINOPHEN
     Route: 065
  4. MABTHERA [Suspect]
     Active Substance: RITUXIMAB
     Indication: PRODUCT USED FOR UNKNOWN INDICATION
     Dosage: 450 MG / COURSE, 2 COURSES
     Route: 064
     Dates: start: 20131021, end: 20131112
  5. DOXORUBICINE [Suspect]
     Active Substance: DOXORUBICIN
     Indication: PRODUCT USED FOR UNKNOWN INDICATION
     Dosage: 82 MG/ COURSE, 2 COURSES
     Route: 064
     Dates: start: 20131021, end: 20131112
  6. ZOPHREN [Concomitant]
     Active Substance: ONDANSETRON
     Route: 065
  7. SOLUPRED (FRANCE) [Concomitant]
     Active Substance: PREDNISOLONE
     Route: 065
     Dates: start: 20131022
  8. SOLUPRED (FRANCE) [Concomitant]
     Active Substance: PREDNISOLONE
     Route: 065
  9. GRANOCYTE [Concomitant]
     Active Substance: LENOGRASTIM
  10. VINCRISTINE SULFATE. [Suspect]
     Active Substance: VINCRISTINE SULFATE
     Indication: PRODUCT USED FOR UNKNOWN INDICATION
     Dosage: 2 MG/COURSE, 2 COURSES
     Route: 064
     Dates: start: 20131021, end: 20131112
  11. METHYLPREDNISOLONE [Suspect]
     Active Substance: METHYLPREDNISOLONE
     Indication: PRODUCT USED FOR UNKNOWN INDICATION
     Dosage: 66 MG/ COURSE, 2 COURSES
     Route: 064
     Dates: start: 20131021, end: 20131112
  12. POLARAMINE [Concomitant]
     Active Substance: DEXCHLORPHENIRAMINE MALEATE
     Route: 065

REACTIONS (5)
  - Foetal growth restriction [Unknown]
  - Foetal exposure during pregnancy [Unknown]
  - Lymphopenia [Recovered/Resolved]
  - Necrotising enterocolitis neonatal [Recovered/Resolved with Sequelae]
  - Hypoglobulinaemia [Unknown]

NARRATIVE: CASE EVENT DATE: 20131127
